FAERS Safety Report 17467096 (Version 2)
Quarter: 2023Q1

REPORT INFORMATION
  Report Type: Other
  Country: DE (occurrence: DE)
  Receive Date: 20200227
  Receipt Date: 20230113
  Transmission Date: 20230418
  Serious: Yes (Hospitalization)
  Sender: FDA-Public Use
  Company Number: DE-ADRED-04127-01

PATIENT
  Age: 87 Year
  Sex: Female
  Weight: 74 kg

DRUGS (17)
  1. OXYCODONE [Suspect]
     Active Substance: OXYCODONE
     Indication: Product used for unknown indication
     Dosage: 50 MILLIGRAM, REQUIREMENT
     Route: 048
  2. DULOXETINE [Suspect]
     Active Substance: DULOXETINE
     Indication: Product used for unknown indication
     Dosage: 60 MILLIGRAM, BID (1-1-0-0)
     Route: 048
  3. PREGABALIN [Suspect]
     Active Substance: PREGABALIN
     Indication: Product used for unknown indication
     Dosage: 75 MILLIGRAM (1-0-0-2)
     Route: 048
  4. CARBIDOPA\LEVODOPA [Suspect]
     Active Substance: CARBIDOPA\LEVODOPA
     Indication: Product used for unknown indication
     Dosage: 25/100 MG, REQUIREMENT
     Route: 048
  5. PRAMIPEXOLE [Suspect]
     Active Substance: PRAMIPEXOLE
     Indication: Product used for unknown indication
     Dosage: 0.18 MILLIGRAM, QD (0-0-0-2 )
     Route: 048
  6. FENTANYL [Interacting]
     Active Substance: FENTANYL
     Indication: Product used for unknown indication
     Dosage: 75 MCG PER HOUR (CHANGE EVERY 3 DAYS)
     Route: 062
  7. FENTANYL [Interacting]
     Active Substance: FENTANYL
     Dosage: 50 MCG PER HOUR (CHANGE EVERY 3 DAYS)
     Route: 062
  8. TORSEMIDE [Interacting]
     Active Substance: TORSEMIDE
     Indication: Product used for unknown indication
     Dosage: 10 MILLIGRAM, QD (1-0-0-0)
     Route: 048
  9. BENSERAZIDE\LEVODOPA [Suspect]
     Active Substance: BENSERAZIDE\LEVODOPA
     Indication: Product used for unknown indication
     Dosage: 25/100 MG 0-0-0-1
     Route: 048
  10. FLUTICASONE PROPIONATE\SALMETEROL XINAFOATE [Concomitant]
     Active Substance: FLUTICASONE PROPIONATE\SALMETEROL XINAFOATE
     Indication: Product used for unknown indication
     Dosage: 250/50 MCG (1-0-1-0)
     Route: 055
  11. PREDNISOLONE [Concomitant]
     Active Substance: PREDNISOLONE
     Indication: Product used for unknown indication
     Dosage: 20 MILLIGRAM (0.5-0-0-0)
     Route: 048
  12. PANTOPRAZOLE [Concomitant]
     Active Substance: PANTOPRAZOLE
     Indication: Product used for unknown indication
     Dosage: 40 MILLIGRAM (1-0-0-0), QD
     Route: 048
  13. LEVOTHYROXINE SODIUM [Concomitant]
     Active Substance: LEVOTHYROXINE SODIUM
     Indication: Product used for unknown indication
     Dosage: 50 MICROGRAM, QD (1-0-0-0 )
     Route: 048
  14. CHOLECALCIFEROL [Concomitant]
     Active Substance: CHOLECALCIFEROL
     Indication: Product used for unknown indication
     Dosage: 20000 INTERNATIONAL UNIT, WEEK
     Route: 048
  15. TIOTROPIUM BROMIDE [Concomitant]
     Active Substance: TIOTROPIUM BROMIDE
     Indication: Product used for unknown indication
     Dosage: 18 MICROGRAM (1-0-0-0 )
     Route: 055
  16. CALCIUMACETATE NEFRO [Concomitant]
     Indication: Product used for unknown indication
     Dosage: 500 MILLIGRAM, BID (1-0-1-0)
     Route: 048
  17. ASPIRIN [Concomitant]
     Active Substance: ASPIRIN
     Indication: Product used for unknown indication
     Dosage: 100 MILLIGRAM, QD (0-1-0-0)
     Route: 048

REACTIONS (7)
  - Product prescribing error [Unknown]
  - Tremor [Unknown]
  - Medication error [Unknown]
  - Hypophagia [Unknown]
  - Labelled drug-drug interaction medication error [Unknown]
  - General physical health deterioration [Unknown]
  - Product prescribing error [Unknown]

NARRATIVE: CASE EVENT DATE: 20190801
